FAERS Safety Report 20957629 (Version 1)
Quarter: 2022Q2

REPORT INFORMATION
  Report Type: Report from Study
  Country: AR (occurrence: None)
  Receive Date: 20220614
  Receipt Date: 20220614
  Transmission Date: 20220721
  Serious: Yes (Other)
  Sender: FDA-Public Use
  Company Number: AR-Merck Healthcare KGaA-9328389

PATIENT
  Age: 45 Year
  Sex: Female

DRUGS (1)
  1. BAVENCIO [Suspect]
     Active Substance: AVELUMAB
     Indication: Transitional cell carcinoma
     Dates: start: 20220412

REACTIONS (3)
  - Gastrointestinal disorder [Not Recovered/Not Resolved]
  - Intestinal haemorrhage [Not Recovered/Not Resolved]
  - Mass [Not Recovered/Not Resolved]

NARRATIVE: CASE EVENT DATE: 20220501
